FAERS Safety Report 23069972 (Version 1)
Quarter: 2023Q4

REPORT INFORMATION
  Report Type: Spontaneous
  Country: US (occurrence: US)
  Receive Date: 20231016
  Receipt Date: 20231016
  Transmission Date: 20240109
  Serious: No
  Sender: FDA-Public Use
  Company Number: US-BRISTOL-MYERS SQUIBB COMPANY-2023-146661

PATIENT
  Age: 66 Year
  Sex: Male
  Weight: 72.1 kg

DRUGS (1)
  1. REVLIMID [Suspect]
     Active Substance: LENALIDOMIDE
     Indication: Plasma cell myeloma
     Dosage: FREQ: DAILY FOR 14DAYS
     Route: 048

REACTIONS (3)
  - Paraesthesia [Unknown]
  - Pain in extremity [Unknown]
  - Off label use [Unknown]
